FAERS Safety Report 8923383 (Version 1)
Quarter: 2012Q4

REPORT INFORMATION
  Report Type: 
  Country: US (occurrence: US)
  Receive Date: 20121123
  Receipt Date: 20121123
  Transmission Date: 20130627
  Serious: Yes (Hospitalization, Other)
  Sender: FDA-Public Use
  Company Number: US-JNJFOC-20121105241

PATIENT
  Age: 56 None
  Sex: Female
  Weight: 54.43 kg

DRUGS (14)
  1. RISPERIDONE [Suspect]
     Indication: PRODUCT USED FOR UNKNOWN INDICATION
     Route: 065
     Dates: start: 2012
  2. LIPITOR [Suspect]
     Indication: BLOOD CHOLESTEROL INCREASED
     Dosage: for 6 years
     Route: 048
     Dates: end: 201204
  3. LOPID [Suspect]
     Indication: BLOOD CHOLESTEROL INCREASED
     Route: 048
  4. UNKNOWN MEDICATION [Suspect]
     Indication: SEPSIS
     Route: 065
     Dates: start: 2012
  5. TRAMADOL [Concomitant]
     Indication: PAIN
     Route: 065
     Dates: start: 2012
  6. SERTRALINE [Concomitant]
     Indication: PRODUCT USED FOR UNKNOWN INDICATION
     Route: 065
     Dates: start: 2012
  7. NICOTINE PATCH [Concomitant]
     Indication: SMOKING CESSATION THERAPY
     Route: 065
  8. LEVOXYL [Concomitant]
     Indication: THYROID DISORDER
     Route: 065
  9. POTASSIUM [Concomitant]
     Indication: PRODUCT USED FOR UNKNOWN INDICATION
     Route: 065
  10. POTASSIUM [Concomitant]
     Indication: PRODUCT USED FOR UNKNOWN INDICATION
     Route: 065
  11. ALPRAZOLAM [Concomitant]
     Indication: SLEEP DISORDER
     Route: 065
  12. VITAMIN D [Concomitant]
     Indication: PRODUCT USED FOR UNKNOWN INDICATION
     Route: 065
  13. VITAMIN B12 [Concomitant]
     Indication: PRODUCT USED FOR UNKNOWN INDICATION
     Route: 065
  14. SYNTHROID [Concomitant]
     Indication: HYPOTHYROIDISM
     Route: 065

REACTIONS (10)
  - Intracranial aneurysm [Unknown]
  - Dyspepsia [Unknown]
  - Skin discolouration [Unknown]
  - Contusion [Unknown]
  - Blister [Unknown]
  - Weight decreased [Unknown]
  - Pharyngeal neoplasm [Unknown]
  - Abdominal discomfort [Unknown]
  - Vomiting [Unknown]
  - Nausea [Unknown]
